FAERS Safety Report 13420631 (Version 26)
Quarter: 2021Q3

REPORT INFORMATION
  Report Type: Report from Study
  Country: CA (occurrence: CA)
  Receive Date: 20170408
  Receipt Date: 20210908
  Transmission Date: 20211014
  Serious: Yes (Hospitalization, Other)
  Sender: FDA-Public Use
  Company Number: PHHY2016CA126097

PATIENT
  Age: 72 Year
  Sex: Female

DRUGS (10)
  1. SANDOSTATIN [Suspect]
     Active Substance: OCTREOTIDE ACETATE
     Dosage: 5 ML, BID
     Route: 058
     Dates: start: 2018
  2. EVEROLIMUS. [Suspect]
     Active Substance: EVEROLIMUS
     Dosage: 10 MG, QD
     Route: 048
  3. CORTISONE [Concomitant]
     Active Substance: CORTISONE
     Indication: PRODUCT USED FOR UNKNOWN INDICATION
     Dosage: UNK
     Route: 065
     Dates: start: 20180910
  4. SANDOSTATIN LAR DEPOT [Suspect]
     Active Substance: OCTREOTIDE ACETATE
  5. SULCRATE [Concomitant]
     Active Substance: SUCRALFATE
     Indication: PRODUCT USED FOR UNKNOWN INDICATION
     Dosage: 5 ML, BID (UNK, BID (EN/IN SUSPENSION)
     Route: 065
     Dates: start: 2018
  6. SANDOSTATIN LAR DEPOT [Suspect]
     Active Substance: OCTREOTIDE ACETATE
     Dosage: 30 MG, QMO
     Route: 030
     Dates: start: 20210827
  7. SANDOSTATIN [Suspect]
     Active Substance: OCTREOTIDE ACETATE
     Indication: CARCINOID TUMOUR
     Dosage: BID
     Route: 058
     Dates: start: 201608, end: 2016
  8. SANDOSTATIN [Suspect]
     Active Substance: OCTREOTIDE ACETATE
  9. SANDOSTATIN LAR DEPOT [Suspect]
     Active Substance: OCTREOTIDE ACETATE
     Indication: CARCINOID TUMOUR
     Dosage: 30 MG, QMO (ONCE A MONTH)
     Route: 030
     Dates: start: 20160902
  10. EVEROLIMUS. [Suspect]
     Active Substance: EVEROLIMUS
     Indication: CARCINOID TUMOUR
     Dosage: UNK (Q 2 DAYS)
     Route: 048
     Dates: start: 201611

REACTIONS (33)
  - Visual impairment [Unknown]
  - Peripheral swelling [Unknown]
  - Weight decreased [Unknown]
  - Influenza [Recovered/Resolved]
  - Decreased appetite [Unknown]
  - Fatigue [Unknown]
  - Herpes zoster [Not Recovered/Not Resolved]
  - Anxiety [Unknown]
  - Pyrexia [Unknown]
  - Vomiting [Unknown]
  - Inappropriate schedule of product administration [Unknown]
  - Needle issue [Unknown]
  - Anaemia [Unknown]
  - Blood glucose increased [Unknown]
  - Vision blurred [Unknown]
  - Abdominal pain [Unknown]
  - Carcinoid tumour [Unknown]
  - Back pain [Unknown]
  - Blood pressure diastolic decreased [Unknown]
  - Intestinal obstruction [Unknown]
  - Malignant neoplasm progression [Unknown]
  - Asthenia [Unknown]
  - Nausea [Unknown]
  - Abdominal adhesions [Unknown]
  - Blood pressure systolic increased [Unknown]
  - Pruritus [Unknown]
  - Product contamination with body fluid [Unknown]
  - Blood pressure abnormal [Unknown]
  - Metastases to liver [Unknown]
  - Hypotension [Unknown]
  - Dizziness [Unknown]
  - Injection site pain [Unknown]
  - Injection site haemorrhage [Unknown]

NARRATIVE: CASE EVENT DATE: 20160909
